FAERS Safety Report 8437194-7 (Version None)
Quarter: 2012Q2

REPORT INFORMATION
  Report Type: 
  Country: None (occurrence: None)
  Receive Date: 20120614
  Receipt Date: 20120312
  Transmission Date: 20120825
  Serious: No
  Sender: FDA-Public Use
  Company Number: US-AMGEN-USASP2011036939

PATIENT
  Age: 70 Year
  Sex: Female
  Weight: 67.12 kg

DRUGS (13)
  1. FISH OIL [Concomitant]
     Dosage: UNK UNK, QD
     Route: 048
  2. LEVOTHYROXINE SODIUM [Concomitant]
     Dosage: 25 MUG, QD
     Route: 048
  3. VITAMIN C                          /00008001/ [Concomitant]
     Dosage: 500 MG, QD
     Route: 048
  4. PROLIA [Suspect]
     Indication: OSTEOPOROSIS POSTMENOPAUSAL
     Dosage: 60 MG, Q6MO
     Dates: start: 20101013
  5. VITAMIN D                          /00318501/ [Concomitant]
     Dosage: 400 IU, UNK
     Route: 048
  6. MULTIVITAMIN                       /00097801/ [Concomitant]
     Dosage: UNK UNK, QD
     Route: 048
  7. CALCIUM CITRATE [Concomitant]
  8. ACCUPRIL [Concomitant]
  9. PROLIA [Suspect]
  10. CALCIUM [Concomitant]
     Dosage: UNK
  11. ZOSTAVAX [Concomitant]
     Dosage: 0.65 ML, UNK
     Route: 058
     Dates: start: 20111107
  12. ENALAPRIL MALEATE [Concomitant]
     Dosage: 10 MG, BID
     Route: 048
  13. ATENOLOL [Concomitant]
     Dosage: 25 MG, QD
     Route: 048

REACTIONS (2)
  - MYALGIA [None]
  - INFLUENZA LIKE ILLNESS [None]
